FAERS Safety Report 5122707-3 (Version None)
Quarter: 2006Q4

REPORT INFORMATION
  Report Type: 
  Country: None (occurrence: None)
  Receive Date: 20061009
  Receipt Date: 20051111
  Transmission Date: 20070319
  Serious: Yes (Other)
  Sender: FDA-Public Use
  Company Number: US-BAYER-200514546BCC

PATIENT
  Age: 80 Year
  Sex: Female
  Weight: 57 kg

DRUGS (4)
  1. ALEVE [Suspect]
     Indication: BACK PAIN
     Route: 048
     Dates: start: 20050101, end: 20051101
  2. ALEVE [Suspect]
     Route: 048
     Dates: start: 20060217
  3. SYNTHROID [Concomitant]
  4. FOSAMAX [Concomitant]

REACTIONS (5)
  - DEAFNESS NEUROSENSORY [None]
  - EAR CONGESTION [None]
  - EPISTAXIS [None]
  - NASAL DISCOMFORT [None]
  - TINNITUS [None]
